FAERS Safety Report 6618627-5 (Version None)
Quarter: 2010Q1

REPORT INFORMATION
  Report Type: 
  Country: None (occurrence: None)
  Receive Date: 20100304
  Receipt Date: 20100304
  Transmission Date: 20100710
  Serious: Yes (Other)
  Sender: FDA-Public Use
  Company Number: None

PATIENT
  Age: 10 Year
  Sex: Female
  Weight: 31.7518 kg

DRUGS (1)
  1. LAMOTRIGINE [Suspect]
     Indication: PETIT MAL EPILEPSY
     Dosage: 4 TABLETS TWICE DAILY PO; 4 TABLETS PO
     Route: 048

REACTIONS (9)
  - ABASIA [None]
  - DIZZINESS [None]
  - DRUG DISPENSING ERROR [None]
  - GAIT DISTURBANCE [None]
  - INCORRECT DOSE ADMINISTERED [None]
  - MEDICATION ERROR [None]
  - MUSCULOSKELETAL STIFFNESS [None]
  - OVERDOSE [None]
  - TIC [None]
